FAERS Safety Report 12565924 (Version 2)
Quarter: 2016Q3

REPORT INFORMATION
  Report Type: Spontaneous
  Country: ES (occurrence: ES)
  Receive Date: 20160718
  Receipt Date: 20160729
  Transmission Date: 20161109
  Serious: Yes (Hospitalization, Other)
  Sender: FDA-Public Use
  Company Number: ES-SA-2016SA127686

PATIENT
  Sex: Female

DRUGS (1)
  1. LEMTRADA [Suspect]
     Active Substance: ALEMTUZUMAB
     Route: 065
     Dates: start: 201606

REACTIONS (5)
  - Listeriosis [Recovering/Resolving]
  - Uhthoff^s phenomenon [Unknown]
  - Malaise [Unknown]
  - Neutropenia [Unknown]
  - Pyrexia [Unknown]
